FAERS Safety Report 9514134 (Version 1)
Quarter: 2013Q3

REPORT INFORMATION
  Report Type: Spontaneous
  Country: PT (occurrence: PT)
  Receive Date: 20130910
  Receipt Date: 20130910
  Transmission Date: 20140515
  Serious: Yes (Hospitalization, Other)
  Sender: FDA-Public Use
  Company Number: PT-WATSON-2013-16399

PATIENT
  Age: 62 Year
  Sex: Female

DRUGS (1)
  1. SIMVASTATIN (UNKNOWN) [Suspect]
     Indication: BLOOD CHOLESTEROL INCREASED
     Dosage: 20 MG, DAILY
     Route: 048
     Dates: start: 2013, end: 2013

REACTIONS (7)
  - Toxic skin eruption [Unknown]
  - Lymphoma [Unknown]
  - Dyshidrotic eczema [Unknown]
  - Hypersensitivity [Unknown]
  - Erythema [Unknown]
  - Feeling hot [Unknown]
  - Skin exfoliation [Unknown]
